FAERS Safety Report 25924899 (Version 1)
Quarter: 2025Q4

REPORT INFORMATION
  Report Type: Spontaneous
  Country: US (occurrence: None)
  Receive Date: 20251014
  Receipt Date: 20251014
  Transmission Date: 20260118
  Serious: Yes (Hospitalization)
  Sender: FDA-CTU
  Company Number: None

PATIENT
  Sex: Male

DRUGS (2)
  1. GLATIRAMER ACETATE [Suspect]
     Active Substance: GLATIRAMER ACETATE
     Indication: Multiple sclerosis
     Dosage: 40 MG 3 TIMES A WEEK SUBCUTANEOUS ?
     Route: 058
     Dates: start: 20231227
  2. REBIF REBID AUTOINJ TITR PACK [Concomitant]

REACTIONS (2)
  - Anaphylactic shock [None]
  - Drug hypersensitivity [None]
